FAERS Safety Report 16765891 (Version 1)
Quarter: 2019Q3

REPORT INFORMATION
  Report Type: Spontaneous
  Country: DE (occurrence: DE)
  Receive Date: 20190903
  Receipt Date: 20190903
  Transmission Date: 20191005
  Serious: Yes (Other)
  Sender: FDA-Public Use
  Company Number: DE-SA-2019SA100637

PATIENT
  Sex: Female

DRUGS (2)
  1. AUBAGIO [Suspect]
     Active Substance: TERIFLUNOMIDE
     Indication: MULTIPLE SCLEROSIS
     Dosage: 1 DF
     Route: 048
     Dates: start: 201604, end: 20190301
  2. CARBIMAZOLE [Interacting]
     Active Substance: CARBIMAZOLE
     Indication: AUTOIMMUNE THYROIDITIS
     Dosage: 20 MG, QD
     Route: 048
     Dates: start: 201901

REACTIONS (3)
  - Drug interaction [Recovering/Resolving]
  - Liver function test increased [Recovering/Resolving]
  - Autoimmune thyroiditis [Unknown]

NARRATIVE: CASE EVENT DATE: 201901
